FAERS Safety Report 8805685 (Version 1)
Quarter: 2012Q4

REPORT INFORMATION
  Report Type: Spontaneous
  Country: GB (occurrence: None)
  Receive Date: 20120917
  Receipt Date: 20120917
  Transmission Date: 20130627
  Serious: Yes (Hospitalization, Other)
  Sender: FDA-Public Use
  Company Number: 2012AP002865

PATIENT
  Age: 37 Year
  Sex: Male

DRUGS (2)
  1. OMEPRAZOLE (OMEPRAZOLE) [Suspect]
     Indication: DRUG USE FOR UNKNOWN INDICATION
     Dates: start: 20110930
  2. SEROQUEL (QUETIAPINE FUMARATE) [Concomitant]

REACTIONS (14)
  - Breast inflammation [None]
  - Dehydration [None]
  - Toxicity to various agents [None]
  - Thirst [None]
  - Gastrointestinal disorder [None]
  - Hair disorder [None]
  - Nausea [None]
  - Prostatic disorder [None]
  - Malaise [None]
  - Skin disorder [None]
  - Gastritis [None]
  - Tendon disorder [None]
  - Visual impairment [None]
  - Vomiting [None]
